FAERS Safety Report 10684564 (Version 1)
Quarter: 2014Q4

REPORT INFORMATION
  Report Type: Spontaneous
  Country: US (occurrence: US)
  Receive Date: 20141231
  Receipt Date: 20141231
  Transmission Date: 20150529
  Serious: Yes (Other)
  Sender: FDA-Public Use
  Company Number: US-BAYER-2014-191098

PATIENT
  Age: 38 Year
  Sex: Male

DRUGS (2)
  1. ANTIHEMOPHILIC FACTOR VIII (RECOMBINANT), SUCROSE FORMULATED [Suspect]
     Active Substance: ANTIHEMOPHILIC FACTOR, HUMAN RECOMBINANT
     Indication: FACTOR VIII DEFICIENCY
     Dosage: 2200 IU, TIW
     Route: 042
  2. ANTIHEMOPHILIC FACTOR VIII (RECOMBINANT), SUCROSE FORMULATED [Suspect]
     Active Substance: ANTIHEMOPHILIC FACTOR, HUMAN RECOMBINANT
     Indication: PROPHYLAXIS

REACTIONS (1)
  - Treatment noncompliance [Recovered/Resolved]
